FAERS Safety Report 9454915 (Version 1)
Quarter: 2013Q3

REPORT INFORMATION
  Report Type: Spontaneous
  Country: DE (occurrence: DE)
  Receive Date: 20130813
  Receipt Date: 20130813
  Transmission Date: 20140515
  Serious: Yes (Other)
  Sender: FDA-Public Use
  Company Number: DE-ASTRAZENECA-2013SE61000

PATIENT
  Sex: Male

DRUGS (3)
  1. BRILIQUE [Suspect]
     Route: 048
  2. MARCUMAR [Concomitant]
  3. ASS [Concomitant]

REACTIONS (1)
  - Acute myocardial infarction [Unknown]
